FAERS Safety Report 11759788 (Version 1)
Quarter: 2015Q4

REPORT INFORMATION
  Report Type: Spontaneous
  Country: US (occurrence: None)
  Receive Date: 20151119
  Receipt Date: 20151119
  Transmission Date: 20160304
  Serious: Yes (Other)
  Sender: FDA-Public Use
  Company Number: None

PATIENT
  Age: 67 Year
  Sex: Female
  Weight: 74.84 kg

DRUGS (9)
  1. ADDERRAL [Concomitant]
  2. CRESTOR [Concomitant]
     Active Substance: ROSUVASTATIN CALCIUM
  3. ZINC [Concomitant]
     Active Substance: ZINC\ZINC CHLORIDE
  4. ACETOMINOPHEN [Concomitant]
  5. IBUPROFEN. [Concomitant]
     Active Substance: IBUPROFEN
  6. CIPRO [Suspect]
     Active Substance: CIPROFLOXACIN HYDROCHLORIDE
     Indication: ENTEROBACTER INFECTION
     Route: 048
     Dates: start: 20150825, end: 20151030
  7. VIVANSE [Concomitant]
  8. TRILIPIX [Concomitant]
     Active Substance: FENOFIBRIC ACID
  9. LEVOTHYROXINE. [Suspect]
     Active Substance: LEVOTHYROXINE

REACTIONS (6)
  - Dizziness [None]
  - Fall [None]
  - Nausea [None]
  - Abasia [None]
  - Tinnitus [None]
  - Therapy cessation [None]
